FAERS Safety Report 8484703-8 (Version None)
Quarter: 2012Q3

REPORT INFORMATION
  Report Type: 
  Country: None (occurrence: None)
  Receive Date: 20120703
  Receipt Date: 20120508
  Transmission Date: 20120928
  Serious: No
  Sender: FDA-Public Use
  Company Number: US-TEVA-337205USA

PATIENT
  Sex: Female
  Weight: 74.456 kg

DRUGS (3)
  1. ADDERALL 5 [Concomitant]
     Indication: NARCOLEPSY
     Dosage: 20 MILLIGRAM;
     Route: 048
  2. UNK DEPRESSION MED [Concomitant]
     Indication: DEPRESSION
  3. NUVIGIL [Suspect]
     Indication: NARCOLEPSY
     Route: 048
     Dates: start: 20110501, end: 20110501

REACTIONS (1)
  - DRUG INEFFECTIVE [None]
